FAERS Safety Report 6042652-9 (Version None)
Quarter: 2009Q1

REPORT INFORMATION
  Report Type: 
  Country: None (occurrence: None)
  Receive Date: 20090119
  Receipt Date: 20090107
  Transmission Date: 20090719
  Serious: Yes (Other)
  Sender: FDA-Public Use
  Company Number: PHEH2008US11313

PATIENT
  Sex: Female

DRUGS (21)
  1. ESTRADERM [Suspect]
     Indication: HORMONE REPLACEMENT THERAPY
     Dosage: UNK
  2. VIVELLE [Suspect]
     Indication: HORMONE REPLACEMENT THERAPY
     Dosage: UNK
  3. COMBIPATCH [Suspect]
     Indication: HORMONE REPLACEMENT THERAPY
     Dosage: UNK
  4. ESTRACE [Concomitant]
  5. PREMARIN [Concomitant]
  6. PROVERA [Concomitant]
  7. CYCRIN [Concomitant]
  8. AYGESTIN [Concomitant]
  9. PREMPRO [Concomitant]
  10. PREMPHASE 14/14 [Concomitant]
  11. VAGIFEM [Concomitant]
  12. FEMHRT [Concomitant]
  13. ACTIVELLA [Concomitant]
  14. CENESTIN [Concomitant]
  15. OGEN [Concomitant]
  16. CLIMARA [Concomitant]
  17. ORTHO TRI-CYCLEN [Concomitant]
  18. ORTHO-PREFEST [Concomitant]
  19. ESTROGENIC SUBSTANCE [Concomitant]
  20. ESTRADIOL [Concomitant]
  21. MEDROXYPROGESTERONE [Concomitant]

REACTIONS (1)
  - INJURY [None]
